FAERS Safety Report 9241498 (Version 2)
Quarter: 2013Q2

REPORT INFORMATION
  Report Type: Spontaneous
  Country: FR (occurrence: FR)
  Receive Date: 20130419
  Receipt Date: 20130426
  Transmission Date: 20140414
  Serious: Yes (Hospitalization, Other)
  Sender: FDA-Public Use
  Company Number: FR-PFIZER INC-2013121814

PATIENT
  Age: 48 Year
  Sex: Female

DRUGS (3)
  1. IBUPROFEN [Suspect]
     Indication: TENDONITIS
     Dosage: UNSPECIFIED, FOR 2 WEEKS
  2. ALPRAZOLAM [Concomitant]
     Indication: DEPRESSION
     Dosage: UNSPECIFIED, FOR 2 WEEKS
  3. FLUOXETINE [Concomitant]
     Indication: DEPRESSION
     Dosage: UNSPECIFIED, FOR 2 WEEKS

REACTIONS (5)
  - Drug reaction with eosinophilia and systemic symptoms [Unknown]
  - Retinal pigment epitheliopathy [Recovered/Resolved]
  - Renal failure acute [Recovering/Resolving]
  - Tubulointerstitial nephritis [Recovering/Resolving]
  - Myocarditis [Recovering/Resolving]
